FAERS Safety Report 7301335-5 (Version None)
Quarter: 2011Q1

REPORT INFORMATION
  Report Type: 
  Country: None (occurrence: None)
  Receive Date: 20110113
  Receipt Date: 20101104
  Transmission Date: 20110831
  Serious: No
  Sender: FDA-Public Use
  Company Number: US-001373

PATIENT
  Sex: Female
  Weight: 4.9442 kg

DRUGS (1)
  1. KUVAN [Suspect]
     Indication: PHENYLKETONURIA
     Dosage: (20 MG/KG QD ORAL)
     Route: 048
     Dates: start: 20100129

REACTIONS (1)
  - INCREASED APPETITE [None]
